FAERS Safety Report 6768502-0 (Version None)
Quarter: 2010Q2

REPORT INFORMATION
  Report Type: 
  Country: None (occurrence: None)
  Receive Date: 20100614
  Receipt Date: 20100607
  Transmission Date: 20101027
  Serious: Yes (Other)
  Sender: FDA-Public Use
  Company Number: US-PFIZER INC-2010056860

PATIENT
  Sex: Female
  Weight: 68.027 kg

DRUGS (2)
  1. CELEBREX [Suspect]
     Indication: ARTHRITIS
     Dosage: 200 MG, 2X/DAY
     Route: 048
     Dates: start: 20100503, end: 20100504
  2. CELEBREX [Suspect]
     Indication: PAIN

REACTIONS (5)
  - ERYTHEMA [None]
  - OCULAR HYPERAEMIA [None]
  - RASH [None]
  - SUNBURN [None]
  - SWELLING FACE [None]
